FAERS Safety Report 7640780-5 (Version None)
Quarter: 2011Q3

REPORT INFORMATION
  Report Type: 
  Country: None (occurrence: None)
  Receive Date: 20110728
  Receipt Date: 20110714
  Transmission Date: 20111222
  Serious: Yes (Other)
  Sender: FDA-Public Use
  Company Number: US-ELI_LILLY_AND_COMPANY-US201107004856

PATIENT
  Sex: Male

DRUGS (2)
  1. ZOLOFT [Concomitant]
     Indication: DEPRESSION
  2. STRATTERA [Suspect]
     Indication: ATTENTION DEFICIT/HYPERACTIVITY DISORDER

REACTIONS (5)
  - SUICIDAL IDEATION [None]
  - HOMICIDE [None]
  - SUICIDE ATTEMPT [None]
  - DEPRESSION [None]
  - AFFECTIVE DISORDER [None]
